FAERS Safety Report 21652927 (Version 1)
Quarter: 2022Q4

REPORT INFORMATION
  Report Type: Report from Study
  Country: US (occurrence: US)
  Receive Date: 20221128
  Receipt Date: 20221128
  Transmission Date: 20230112
  Serious: No
  Sender: FDA-Public Use
  Company Number: US-ABBVIE-22K-163-4422136-00

PATIENT
  Age: 83 Year
  Sex: Female

DRUGS (2)
  1. CREON [Suspect]
     Active Substance: PANCRELIPASE AMYLASE\PANCRELIPASE LIPASE\PANCRELIPASE PROTEASE
     Indication: Product used for unknown indication
     Dosage: ONE CAPSULES WITH MEAL AND SNACK, END DATE: 2021?FORM STRENGTH: 24000 UNIT
     Route: 048
     Dates: start: 202109
  2. CREON [Suspect]
     Active Substance: PANCRELIPASE AMYLASE\PANCRELIPASE LIPASE\PANCRELIPASE PROTEASE
     Indication: Product used for unknown indication
     Dosage: START DATE: 2021, FORM STRENGTH: 24000 UNIT
     Route: 048
     Dates: end: 202112

REACTIONS (2)
  - Diarrhoea [Unknown]
  - Faeces hard [Unknown]

NARRATIVE: CASE EVENT DATE: 20220101
